FAERS Safety Report 21148681 (Version 1)
Quarter: 2022Q3

REPORT INFORMATION
  Report Type: Spontaneous
  Country: US (occurrence: None)
  Receive Date: 20220728
  Receipt Date: 20220728
  Transmission Date: 20221026
  Serious: Yes (Disabling)
  Sender: FDA-Public Use
  Company Number: None

PATIENT
  Age: 23 Year
  Sex: Female
  Weight: 58.97 kg

DRUGS (1)
  1. COPPER-CONTAINING INTRAUTERINE DEVICE (IUD) [Suspect]
     Active Substance: COPPER
     Dates: start: 20211109, end: 20220728

REACTIONS (6)
  - Bacterial vaginosis [None]
  - Acne [None]
  - Mood swings [None]
  - Anxiety [None]
  - Menopausal symptoms [None]
  - Intermenstrual bleeding [None]

NARRATIVE: CASE EVENT DATE: 20211109
